FAERS Safety Report 15221059 (Version 2)
Quarter: 2018Q3

REPORT INFORMATION
  Report Type: Spontaneous
  Country: KR (occurrence: KR)
  Receive Date: 20180731
  Receipt Date: 20180808
  Transmission Date: 20181010
  Serious: Yes (Death, Other)
  Sender: FDA-Public Use
  Company Number: KR-009507513-1807KOR011985

PATIENT
  Sex: Female

DRUGS (13)
  1. MACPERAN [Concomitant]
     Active Substance: METOCLOPRAMIDE HYDROCHLORIDE
     Dosage: UNK, 9 TIMES
     Dates: start: 20180703, end: 20180710
  2. DEXTROSE. [Concomitant]
     Active Substance: DEXTROSE
     Dosage: UNK
     Dates: start: 20180709, end: 20180711
  3. CURAN [Concomitant]
     Active Substance: RANITIDINE HYDROCHLORIDE
     Dosage: UNK, 1 TIME
     Dates: start: 20180711
  4. KEYTRUDA [Suspect]
     Active Substance: PEMBROLIZUMAB
     Indication: GASTRIC CANCER
     Dosage: UNK, 2 TIMES
     Dates: start: 20180706
  5. FOMS TNA [Concomitant]
     Dosage: UNK, 2 TIMES
     Dates: start: 20180711, end: 20180712
  6. POTASSIUM CHLORIDE. [Concomitant]
     Active Substance: POTASSIUM CHLORIDE
     Dosage: UNK, 3 TIMES
     Dates: start: 20180704
  7. SODIUM CHLORIDE. [Concomitant]
     Active Substance: SODIUM CHLORIDE
     Dosage: UNK, 5 TIMES
     Dates: start: 20180704, end: 20180709
  8. PENIRAMIN [Concomitant]
     Dosage: UNK, 2 TIMES
     Dates: start: 20180704, end: 20180711
  9. NALOXONE (NALOXONE HYDROCHLORIDE) [Concomitant]
     Active Substance: NALOXONE HYDROCHLORIDE
     Dosage: UNK, 1 TIME
     Dates: start: 20180712
  10. DEXTROSE. [Concomitant]
     Active Substance: DEXTROSE
     Dosage: UNK, 3 TIMES
     Dates: start: 20180704
  11. FREAMINE III NOS [Concomitant]
     Active Substance: AMINO ACIDS
     Dosage: UNK, 1 TIME
     Dates: start: 20180710
  12. MORPHINE SULFATE. [Concomitant]
     Active Substance: MORPHINE SULFATE
     Dosage: UNK, 8 TIMES
     Dates: start: 20180704, end: 20180709
  13. NAK200 [Concomitant]
     Dosage: UNK, 9 TIMES
     Dates: start: 20180705, end: 20180711

REACTIONS (2)
  - Product use in unapproved indication [Unknown]
  - Malignant neoplasm progression [Fatal]

NARRATIVE: CASE EVENT DATE: 20180706
